FAERS Safety Report 7183042-5 (Version None)
Quarter: 2010Q4

REPORT INFORMATION
  Report Type: 
  Country: None (occurrence: None)
  Receive Date: 20101222
  Receipt Date: 20100416
  Transmission Date: 20110411
  Serious: Yes (Hospitalization, Other)
  Sender: FDA-Public Use
  Company Number: US-RANBAXY-2010US-33499

PATIENT

DRUGS (21)
  1. GANCICLOVIR [Suspect]
     Indication: ANTIVIRAL PROPHYLAXIS
     Dosage: 1000 MG, TID
     Route: 048
     Dates: start: 20081103, end: 20081201
  2. ACYCLOVIR SODIUM [Suspect]
     Indication: ANTIVIRAL PROPHYLAXIS
     Dosage: 400 MG, BID
     Route: 048
     Dates: start: 20081103, end: 20081201
  3. MARIBAVIR (PLACEBO) [Suspect]
     Indication: ANTIVIRAL PROPHYLAXIS
     Dosage: 100 MG, BID
     Route: 048
     Dates: start: 20081103, end: 20081201
  4. CELLCEPT [Suspect]
     Indication: PROPHYLAXIS AGAINST TRANSPLANT REJECTION
     Dosage: UNK, UNK
     Route: 065
  5. ACETYLCYSTEINE [Concomitant]
     Indication: PROPHYLAXIS
     Dosage: UNK, UNK
     Route: 065
  6. ASPIRIN [Concomitant]
     Indication: THROMBOSIS PROPHYLAXIS
     Dosage: UNK, UNK
     Route: 065
  7. BACTRIM [Concomitant]
     Indication: ANTIBIOTIC PROPHYLAXIS
     Dosage: UNK, UNK
     Route: 065
  8. CELEXA [Concomitant]
     Indication: DEPRESSION
     Dosage: UNK, UNK
     Route: 065
  9. DIFLUCAN [Concomitant]
     Indication: ANTIFUNGAL PROPHYLAXIS
     Dosage: UNK, UNK
     Route: 065
  10. DILAUDID [Concomitant]
     Indication: PROCEDURAL PAIN
     Dosage: UNK, UNK
     Route: 065
  11. HEPARIN [Concomitant]
     Indication: THROMBOSIS PROPHYLAXIS
     Dosage: UNK, UNK
     Route: 065
  12. INTRON A [Concomitant]
     Indication: HEPATITIS C
     Dosage: UNK, UNK
     Route: 065
  13. LOPRESSOR [Concomitant]
     Indication: PORTAL HYPERTENSION
     Dosage: UNK, UNK
     Route: 065
  14. OMEPRAZOLE [Concomitant]
     Indication: GASTROOESOPHAGEAL REFLUX PROPHYLAXIS
     Dosage: UNK, UNK
     Route: 065
  15. PHENERGAN [Concomitant]
     Indication: NAUSEA
     Dosage: UNK, UNK
     Route: 065
  16. PREDNISONE [Concomitant]
     Indication: PROPHYLAXIS AGAINST TRANSPLANT REJECTION
     Dosage: UNK, UNK
     Route: 065
  17. PROGRAF [Concomitant]
     Indication: PROPHYLAXIS AGAINST TRANSPLANT REJECTION
     Dosage: UNK, UNK
     Route: 065
  18. REGULAR INSULIN [Concomitant]
     Indication: HYPERGLYCAEMIA
     Dosage: UNK, UNK
     Route: 065
  19. RIBAVIRIN [Concomitant]
     Indication: HEPATITIS C
     Dosage: UNK, UNK
     Route: 065
  20. URSODIL [Concomitant]
     Indication: CHOLELITHIASIS
     Dosage: UNK, UNK
     Route: 065
  21. VALCYTE [Concomitant]
     Indication: ANTIVIRAL PROPHYLAXIS
     Dosage: UNK, UNK
     Route: 065

REACTIONS (5)
  - CYTOMEGALOVIRUS INFECTION [None]
  - DIARRHOEA [None]
  - DRUG INEFFECTIVE [None]
  - HEPATIC ENZYME INCREASED [None]
  - HEPATITIS C [None]
